FAERS Safety Report 10686699 (Version 2)
Quarter: 2015Q1

REPORT INFORMATION
  Report Type: Spontaneous
  Country: AE (occurrence: AE)
  Receive Date: 20150101
  Receipt Date: 20150107
  Transmission Date: 20150720
  Serious: Yes (Life-Threatening)
  Sender: FDA-Public Use
  Company Number: AE-GLAXOSMITHKLINE-AE2014GSK043670

PATIENT
  Age: 5 Year
  Sex: Male

DRUGS (1)
  1. ZINNAT [Suspect]
     Active Substance: CEFUROXIME AXETIL
     Indication: TONSILLITIS
     Dosage: 10 MG/KG, UNK
     Route: 048

REACTIONS (1)
  - Hyperglycaemia [Recovered/Resolved]
